FAERS Safety Report 6105660-5 (Version None)
Quarter: 2009Q1

REPORT INFORMATION
  Report Type: 
  Country: None (occurrence: None)
  Receive Date: 20090306
  Receipt Date: 20090225
  Transmission Date: 20090719
  Serious: Yes (Hospitalization)
  Sender: FDA-Public Use
  Company Number: JP-ELI_LILLY_AND_COMPANY-JP200807002714

PATIENT
  Age: 65 Year
  Sex: Female
  Weight: 53.8 kg

DRUGS (12)
  1. HUMALOG MIX 50/50 [Suspect]
     Dosage: 10 U, EACH MORNING
     Route: 058
     Dates: start: 20070323, end: 20071205
  2. HUMALOG MIX 50/50 [Suspect]
     Dosage: 10 U, DAILY (1/D)
     Route: 058
     Dates: start: 20070323, end: 20071205
  3. HUMALOG MIX 50/50 [Suspect]
     Dosage: 10U, EACH EVENING
     Route: 058
     Dates: start: 20070323, end: 20071205
  4. HUMALOG MIX 50/50 [Suspect]
     Dosage: 28 U, DAILY (1/D)
     Route: 058
     Dates: start: 20071206, end: 20080109
  5. HUMALOG MIX 50/50 [Suspect]
     Dosage: 12U, EACH MORNING
     Route: 058
     Dates: start: 20080110
  6. HUMALOG MIX 50/50 [Suspect]
     Dosage: 10U, DAILY (1/D)
     Route: 058
     Dates: start: 20080110
  7. HUMALOG MIX 50/50 [Suspect]
     Dosage: 12 U, EACH EVENING
     Route: 058
     Dates: start: 20080110
  8. BLOPRESS [Concomitant]
     Indication: HYPERTENSION
     Dosage: 8 MG, DAILY (1/D)
     Route: 048
     Dates: start: 20080323
  9. NORVASC [Concomitant]
     Indication: HYPERTENSION
     Dosage: 5 MG, DAILY (1/D)
     Route: 048
     Dates: start: 20070323, end: 20070829
  10. LASIX [Concomitant]
     Indication: CARDIAC FAILURE
     Dosage: 40 MG, DAILY (1/D)
     Route: 048
     Dates: start: 20080323
  11. LENDORMIN [Concomitant]
     Indication: INSOMNIA
     Dosage: 0.25 MG, DAILY (1/D)
     Route: 048
     Dates: start: 20070323
  12. ASPIRIN [Concomitant]
     Indication: PROPHYLAXIS
     Dosage: 100 MG, DAILY (1/D)
     Route: 048
     Dates: start: 20070601

REACTIONS (1)
  - DRUG HYPERSENSITIVITY [None]
